FAERS Safety Report 5603375-0 (Version None)
Quarter: 2008Q1

REPORT INFORMATION
  Report Type: 
  Country: None (occurrence: None)
  Receive Date: 20080122
  Receipt Date: 20080115
  Transmission Date: 20080703
  Serious: Yes (Other)
  Sender: FDA-Public Use
  Company Number: 18196

PATIENT
  Age: 6 Year
  Sex: Male

DRUGS (10)
  1. METHOTREXATE [Suspect]
     Indication: NON-HODGKIN'S LYMPHOMA
  2. METHOTREXATE [Suspect]
     Indication: NON-HODGKIN'S LYMPHOMA
  3. PREDNISONE TAB [Concomitant]
  4. CYCLOPHOSPHAMIDE [Concomitant]
  5. VINCRISTINE [Concomitant]
  6. IFOSFAMIDE [Concomitant]
  7. CYTARABINE [Concomitant]
  8. ETOPOSIDE [Concomitant]
  9. DOXORUBICIN HCL [Concomitant]
  10. LEUCOVORIN CALCIUM [Concomitant]

REACTIONS (2)
  - CEREBRAL HAEMATOMA [None]
  - REFUSAL OF TREATMENT BY RELATIVE [None]
